FAERS Safety Report 6538105-1 (Version None)
Quarter: 2009Q4

REPORT INFORMATION
  Report Type: 
  Country: None (occurrence: None)
  Receive Date: 20091231
  Receipt Date: 20081229
  Transmission Date: 20100525
  Serious: Yes (Hospitalization, Other)
  Sender: FDA-Public Use
  Company Number: 183307USA

PATIENT
  Age: 77 Year
  Sex: Male
  Weight: 117.9352 kg

DRUGS (10)
  1. AMIODARONE HYDROCHLORIDE [Suspect]
     Indication: CARDIAC FAILURE CONGESTIVE
     Dosage: 300-400MG DAILY (200 MG), ORAL
     Route: 048
     Dates: start: 20060101
  2. AMIODARONE HYDROCHLORIDE [Suspect]
     Indication: VENTRICULAR ARRHYTHMIA
     Dosage: 300-400MG DAILY (200 MG), ORAL
     Route: 048
     Dates: start: 20060101
  3. PLAVIX [Concomitant]
  4. ACETYLSALICYLIC ACID [Concomitant]
  5. BENICAR [Concomitant]
  6. ISOSORBIDE MONONITRATE [Concomitant]
  7. COREG [Concomitant]
  8. NORVASC [Concomitant]
  9. FERROUS SULFATE TAB [Concomitant]
  10. ZOCOR [Concomitant]

REACTIONS (3)
  - BRONCHITIS [None]
  - CARDIAC FAILURE CONGESTIVE [None]
  - MYOCARDIAL INFARCTION [None]
